FAERS Safety Report 25975827 (Version 1)
Quarter: 2025Q4

REPORT INFORMATION
  Report Type: Spontaneous
  Country: US (occurrence: US)
  Receive Date: 20251029
  Receipt Date: 20251029
  Transmission Date: 20260117
  Serious: Yes (Hospitalization, Other)
  Sender: ALEMBIC
  Company Number: US-ALEMBIC PHARMACUETICALS LIMITED-2025SCAL001416

PATIENT

DRUGS (5)
  1. DOXORUBICIN HYDROCHLORIDE [Suspect]
     Active Substance: DOXORUBICIN HYDROCHLORIDE
     Indication: Diffuse large B-cell lymphoma
     Dosage: UNK
     Route: 065
  2. CYCLOPHOSPHAMIDE [Suspect]
     Active Substance: CYCLOPHOSPHAMIDE
     Indication: Diffuse large B-cell lymphoma
     Dosage: UNK
     Route: 065
  3. VINCRISTINE [Suspect]
     Active Substance: VINCRISTINE
     Indication: Diffuse large B-cell lymphoma
     Dosage: UNK
     Route: 065
  4. PREDNISONE [Suspect]
     Active Substance: PREDNISONE
     Indication: Diffuse large B-cell lymphoma
     Dosage: UNK
     Route: 065
  5. RITUXIMAB [Suspect]
     Active Substance: RITUXIMAB
     Indication: Diffuse large B-cell lymphoma
     Dosage: UNK
     Route: 065

REACTIONS (14)
  - Pericarditis [Recovering/Resolving]
  - Gastrointestinal haemorrhage [Unknown]
  - Cardiomyopathy [Recovering/Resolving]
  - Cardiac failure [Recovering/Resolving]
  - Atrial fibrillation [Recovering/Resolving]
  - Cardiac tamponade [Recovering/Resolving]
  - Cachexia [Recovering/Resolving]
  - Ejection fraction decreased [Recovering/Resolving]
  - Cardiac failure acute [Recovering/Resolving]
  - Fatigue [Recovering/Resolving]
  - Cardiac failure chronic [Recovering/Resolving]
  - Cardiotoxicity [Recovering/Resolving]
  - N-terminal prohormone brain natriuretic peptide increased [Recovering/Resolving]
  - Walking distance test abnormal [Recovering/Resolving]
